FAERS Safety Report 6000007-7 (Version None)
Quarter: 2008Q4

REPORT INFORMATION
  Report Type: 
  Country: None (occurrence: None)
  Receive Date: 20081211
  Receipt Date: 20081126
  Transmission Date: 20090506
  Serious: Yes (Other)
  Sender: FDA-Public Use
  Company Number: 2008S1021228

PATIENT
  Age: 69 Year
  Sex: Male

DRUGS (4)
  1. FLUCONAZOLE [Suspect]
     Indication: DRUG USE FOR UNKNOWN INDICATION
  2. VANCOMYCIN [Suspect]
     Indication: ARTHRITIS INFECTIVE
  3. MEROPENEM (MEROPENEM) [Suspect]
     Indication: ARTHRITIS INFECTIVE
  4. PRISTINAMYCIN (PRISTINAMYCIN) [Suspect]
     Indication: DRUG USE FOR UNKNOWN INDICATION

REACTIONS (3)
  - DRUG INEFFECTIVE [None]
  - DRUG RESISTANCE [None]
  - TREATMENT FAILURE [None]
